FAERS Safety Report 7331097-7 (Version None)
Quarter: 2011Q1

REPORT INFORMATION
  Report Type: 
  Country: None (occurrence: None)
  Receive Date: 20110304
  Receipt Date: 20110225
  Transmission Date: 20110831
  Serious: Yes (Hospitalization, Other)
  Sender: FDA-Public Use
  Company Number: NL-US-EMD SERONO, INC.-7042464

PATIENT
  Sex: Female
  Weight: 100 kg

DRUGS (9)
  1. REBIF [Suspect]
     Indication: MULTIPLE SCLEROSIS
     Route: 058
     Dates: start: 20030101
  2. REBIF [Suspect]
  3. SINTROM [Concomitant]
     Indication: ANTICOAGULANT THERAPY
     Route: 048
     Dates: start: 20110210
  4. FOSINOPRIL SODIUM [Concomitant]
     Indication: HYPERTENSION
     Route: 048
     Dates: start: 20100701
  5. METOPROLOL [Concomitant]
     Indication: HYPERTENSION
     Route: 048
     Dates: start: 20100701
  6. ACETYLSALICYLZUUR [Concomitant]
     Indication: ANTICOAGULANT THERAPY
     Route: 048
     Dates: start: 20100701
  7. PAROXETINE [Concomitant]
     Indication: DEPRESSION
     Route: 048
     Dates: start: 20030101
  8. SIMVASTATIN [Concomitant]
     Indication: BLOOD CHOLESTEROL
     Route: 048
     Dates: start: 20100701
  9. METFORMINE [Concomitant]
     Indication: DIABETES MELLITUS
     Route: 048
     Dates: start: 20101101

REACTIONS (4)
  - DEPRESSED MOOD [None]
  - HYPERTENSION [None]
  - DIABETES MELLITUS [None]
  - ATRIAL FIBRILLATION [None]
